FAERS Safety Report 7040221-5 (Version None)
Quarter: 2010Q4

REPORT INFORMATION
  Report Type: 
  Country: None (occurrence: None)
  Receive Date: 20101012
  Receipt Date: 20100929
  Transmission Date: 20110411
  Serious: Yes (Hospitalization)
  Sender: FDA-Public Use
  Company Number: US-MYLANLABS-2010S1018326

PATIENT
  Age: 62 Year
  Sex: Female

DRUGS (7)
  1. MERCAPTOPURINE [Suspect]
     Indication: CROHN'S DISEASE
     Route: 065
     Dates: start: 20020101
  2. MERCAPTOPURINE [Suspect]
     Route: 065
  3. MESALAZINE [Concomitant]
     Indication: CROHN'S DISEASE
     Route: 065
     Dates: start: 20060101
  4. ALLOPURINOL [Concomitant]
     Indication: CROHN'S DISEASE
     Route: 065
     Dates: start: 20080301
  5. METHOTREXATE [Concomitant]
     Indication: PSORIASIS
     Route: 065
  6. INFLIXIMAB [Concomitant]
     Indication: PSORIASIS
     Route: 065
  7. ETANERCEPT [Concomitant]
     Indication: PSORIASIS
     Route: 065
     Dates: end: 20080701

REACTIONS (1)
  - ACUTE MYELOID LEUKAEMIA [None]
